FAERS Safety Report 6249820-1 (Version None)
Quarter: 2009Q2

REPORT INFORMATION
  Report Type: 
  Country: None (occurrence: None)
  Receive Date: 20090629
  Receipt Date: 20090617
  Transmission Date: 20091009
  Serious: Yes (Other)
  Sender: FDA-Public Use
  Company Number: PHEH2009US01784

PATIENT
  Sex: Male

DRUGS (1)
  1. CLOZARIL [Suspect]

REACTIONS (6)
  - APATHY [None]
  - BRAIN INJURY [None]
  - DYSKINESIA [None]
  - FEELING ABNORMAL [None]
  - TREMOR [None]
  - WHITE BLOOD CELL COUNT DECREASED [None]
